FAERS Safety Report 10564633 (Version 1)
Quarter: 2014Q4

REPORT INFORMATION
  Report Type: Spontaneous
  Country: FR (occurrence: FR)
  Receive Date: 20141104
  Receipt Date: 20141104
  Transmission Date: 20150529
  Serious: Yes (Hospitalization)
  Sender: FDA-Public Use
  Company Number: FR-ASTRAZENECA-2014SE83144

PATIENT
  Age: 26783 Day
  Sex: Male

DRUGS (1)
  1. BRILIQUE [Suspect]
     Active Substance: TICAGRELOR
     Route: 048
     Dates: start: 201302, end: 20140913

REACTIONS (4)
  - Renal cyst [Unknown]
  - Haematuria [Recovered/Resolved]
  - Prostatomegaly [Unknown]
  - Urinary retention [Unknown]

NARRATIVE: CASE EVENT DATE: 20140910
